FAERS Safety Report 23781079 (Version 3)
Quarter: 2024Q2

REPORT INFORMATION
  Report Type: Spontaneous
  Country: JP (occurrence: JP)
  Receive Date: 20240425
  Receipt Date: 20240610
  Transmission Date: 20240716
  Serious: Yes (Hospitalization)
  Sender: FDA-Public Use
  Company Number: JP-KYOWAKIRIN-2024KK009159

PATIENT
  Age: 9 Decade
  Sex: Female

DRUGS (1)
  1. CINACALCET HYDROCHLORIDE [Suspect]
     Active Substance: CINACALCET HYDROCHLORIDE
     Indication: Hypercalcaemia
     Dosage: 50 MILLIGRAM/DAY
     Route: 048
     Dates: start: 20231001

REACTIONS (3)
  - Blood calcium abnormal [Recovering/Resolving]
  - Dysphagia [Unknown]
  - Wrong technique in product usage process [Unknown]
